FAERS Safety Report 9472299 (Version 1)
Quarter: 2013Q3

REPORT INFORMATION
  Report Type: Spontaneous
  Country: US (occurrence: US)
  Receive Date: 20130823
  Receipt Date: 20130823
  Transmission Date: 20140515
  Serious: Yes (Hospitalization)
  Sender: FDA-Public Use
  Company Number: US-JNJFOC-20130805202

PATIENT
  Age: 82 Year
  Sex: Female
  Weight: 37.2 kg

DRUGS (8)
  1. TYLOX [Suspect]
     Indication: PAIN IN EXTREMITY
     Route: 065
  2. TYLOX [Suspect]
     Indication: BACK PAIN
     Route: 065
  3. PREMARIN [Suspect]
     Indication: THYROIDECTOMY
     Route: 048
  4. SPIRONOLACTONE [Concomitant]
     Indication: PRODUCT USED FOR UNKNOWN INDICATION
  5. BUMEX [Concomitant]
     Indication: PRODUCT USED FOR UNKNOWN INDICATION
  6. LANOXIN [Concomitant]
     Indication: PRODUCT USED FOR UNKNOWN INDICATION
  7. NEURONTIN [Concomitant]
     Indication: PRODUCT USED FOR UNKNOWN INDICATION
     Route: 065
  8. SYNTHROID [Concomitant]
     Indication: PRODUCT USED FOR UNKNOWN INDICATION

REACTIONS (8)
  - Back pain [Unknown]
  - Abdominal pain upper [Unknown]
  - Blood potassium increased [Unknown]
  - Thyroid disorder [Unknown]
  - Memory impairment [Unknown]
  - Hypoacusis [Unknown]
  - Malaise [Unknown]
  - Drug ineffective [Unknown]
